FAERS Safety Report 22021625 (Version 1)
Quarter: 2023Q1

REPORT INFORMATION
  Report Type: Spontaneous
  Country: US (occurrence: None)
  Receive Date: 20230218
  Receipt Date: 20230218
  Transmission Date: 20230418
  Serious: Yes (Other)
  Sender: FDA-Public Use
  Company Number: None

PATIENT
  Age: 44 Year
  Sex: Female
  Weight: 45.45 kg

DRUGS (1)
  1. MINOXIDIL (FOR WOMEN) [Suspect]
     Active Substance: MINOXIDIL
     Indication: Alopecia
     Route: 061
     Dates: start: 20230203, end: 20230215

REACTIONS (1)
  - Palpitations [None]

NARRATIVE: CASE EVENT DATE: 20230216
